FAERS Safety Report 21316836 (Version 1)
Quarter: 2022Q3

REPORT INFORMATION
  Report Type: Spontaneous
  Country: US (occurrence: US)
  Receive Date: 20220911
  Receipt Date: 20220911
  Transmission Date: 20221027
  Serious: No
  Sender: FDA-Public Use
  Company Number: US-SA-SAC20220818000536

PATIENT
  Age: 43 Year
  Sex: Male
  Weight: 102.9 kg

DRUGS (2)
  1. DUPIXENT [Suspect]
     Active Substance: DUPILUMAB
     Dosage: 600 MG, 1X
     Route: 058
     Dates: start: 2022
  2. DUPIXENT [Suspect]
     Active Substance: DUPILUMAB
     Dosage: 300 MG,OTHER
     Route: 058
     Dates: start: 20220808

REACTIONS (3)
  - Fatigue [Unknown]
  - Asthenia [Unknown]
  - Feeling hot [Unknown]

NARRATIVE: CASE EVENT DATE: 20220101
